FAERS Safety Report 24288771 (Version 1)
Quarter: 2024Q3

REPORT INFORMATION
  Report Type: Spontaneous
  Country: GB (occurrence: GB)
  Receive Date: 20240906
  Receipt Date: 20240906
  Transmission Date: 20241017
  Serious: Yes (Death)
  Sender: BIOGEN
  Company Number: GB-BIOGEN-2024BI01281061

PATIENT
  Age: 74 Year
  Sex: Male

DRUGS (1)
  1. TECFIDERA [Suspect]
     Active Substance: DIMETHYL FUMARATE
     Indication: Multiple sclerosis
     Route: 050
     Dates: start: 202210, end: 202408

REACTIONS (1)
  - Death [Fatal]

NARRATIVE: CASE EVENT DATE: 20240801
